FAERS Safety Report 11696500 (Version 1)
Quarter: 2015Q4

REPORT INFORMATION
  Report Type: Spontaneous
  Country: GB (occurrence: GB)
  Receive Date: 20151104
  Receipt Date: 20151104
  Transmission Date: 20160304
  Serious: Yes (Other)
  Sender: FDA-Public Use
  Company Number: GB-BAYER-2015-453610

PATIENT
  Age: 20 Year
  Sex: Female
  Weight: 68.94 kg

DRUGS (1)
  1. YASMIN [Suspect]
     Active Substance: DROSPIRENONE\ETHINYL ESTRADIOL
     Indication: MENSTRUATION IRREGULAR
     Dosage: 0.03 MG, QD
     Route: 048
     Dates: start: 20150714, end: 20151007

REACTIONS (5)
  - Constipation [Recovered/Resolved with Sequelae]
  - Abdominal pain upper [Unknown]
  - Abnormal weight gain [Unknown]
  - Pain [Unknown]
  - Painful defaecation [Unknown]

NARRATIVE: CASE EVENT DATE: 2015
